FAERS Safety Report 23636793 (Version 3)
Quarter: 2024Q2

REPORT INFORMATION
  Report Type: Spontaneous
  Country: US (occurrence: US)
  Receive Date: 20240315
  Receipt Date: 20240429
  Transmission Date: 20240716
  Serious: Yes (Other)
  Sender: FDA-Public Use
  Company Number: US-PFIZER INC-PV202400034963

PATIENT
  Age: 62 Year
  Sex: Female

DRUGS (1)
  1. INLYTA [Suspect]
     Active Substance: AXITINIB
     Dosage: UNK
     Dates: start: 20240307, end: 20240418

REACTIONS (7)
  - Blood pressure increased [Unknown]
  - Hyperthyroidism [Unknown]
  - Pancreatitis [Unknown]
  - Fatigue [Unknown]
  - Hypersomnia [Unknown]
  - Vomiting [Recovering/Resolving]
  - Pain [Unknown]

NARRATIVE: CASE EVENT DATE: 20240101
